FAERS Safety Report 8847708 (Version 1)
Quarter: 2012Q4

REPORT INFORMATION
  Report Type: 
  Country: CH (occurrence: CH)
  Receive Date: 20121018
  Receipt Date: 20121018
  Transmission Date: 20130627
  Serious: Yes (Hospitalization)
  Sender: FDA-Public Use
  Company Number: CH-TEVA-364562ISR

PATIENT
  Age: 73 Year
  Sex: Male

DRUGS (6)
  1. MOVICOL [Concomitant]
     Indication: LAXATIVE SUPPORTIVE CARE
     Dosage: 1 Dosage forms Daily;
     Route: 048
     Dates: start: 20120313
  2. PANTOPRAZOLE [Concomitant]
     Indication: GASTRITIS PROPHYLAXIS
     Dosage: 40 Milligram Daily;
     Route: 048
     Dates: start: 20120308
  3. NIFEDIPINE [Suspect]
     Dosage: 30 Milligram Daily;
     Route: 048
     Dates: start: 20120410, end: 20120411
  4. CIPRALEX [Suspect]
     Dosage: 10 Milligram Daily;
     Route: 048
     Dates: start: 20120216, end: 20120410
  5. CIPRALEX [Suspect]
     Dosage: 20 Milligram Daily;
     Route: 048
     Dates: start: 20120411, end: 20120411
  6. APPROVEL [Concomitant]
     Indication: HYPERTENSION
     Dosage: 150 Milligram Daily;
     Route: 048
     Dates: start: 20120403

REACTIONS (2)
  - Inappropriate antidiuretic hormone secretion [Unknown]
  - Hyponatraemia [Recovering/Resolving]
